FAERS Safety Report 21875400 (Version 4)
Quarter: 2023Q2

REPORT INFORMATION
  Report Type: Spontaneous
  Country: US (occurrence: US)
  Receive Date: 20230118
  Receipt Date: 20230501
  Transmission Date: 20230722
  Serious: No
  Sender: FDA-Public Use
  Company Number: US-IMMUNOCORE, LTD-2023-IMC-001335

PATIENT
  Age: 69 Year
  Sex: Male

DRUGS (4)
  1. KIMMTRAK [Suspect]
     Active Substance: TEBENTAFUSP-TEBN
     Indication: Metastatic ocular melanoma
     Dosage: 20 MICROGRAM, SINGLE, DOSE 1
     Dates: start: 20220623
  2. KIMMTRAK [Suspect]
     Active Substance: TEBENTAFUSP-TEBN
     Dosage: 68 MICROGRAM, WEEKLY, DOSE 34
     Dates: start: 20230208
  3. OPDUALAG [Suspect]
     Active Substance: NIVOLUMAB\RELATLIMAB-RMBW
     Indication: Metastatic ocular melanoma
     Dosage: UNK
     Dates: start: 20221214
  4. OPDUALAG [Suspect]
     Active Substance: NIVOLUMAB\RELATLIMAB-RMBW
     Dosage: UNK, DOSE 2
     Dates: start: 20230222

REACTIONS (8)
  - Immune-mediated adverse reaction [Unknown]
  - Vitiligo [Not Recovered/Not Resolved]
  - Nausea [Recovered/Resolved]
  - Diarrhoea [Recovered/Resolved]
  - Night sweats [Recovered/Resolved]
  - Fatigue [Recovered/Resolved]
  - Back pain [Unknown]
  - Treatment delayed [Unknown]

NARRATIVE: CASE EVENT DATE: 20220907
